FAERS Safety Report 5198397-0 (Version None)
Quarter: 2006Q4

REPORT INFORMATION
  Report Type: 
  Country: None (occurrence: None)
  Receive Date: 20061229
  Receipt Date: 20061226
  Transmission Date: 20070319
  Serious: Yes (Death)
  Sender: FDA-Public Use
  Company Number: 163-21880-06121163

PATIENT
  Sex: Male

DRUGS (3)
  1. REVLIMID [Suspect]
     Indication: MYELODYSPLASTIC SYNDROME
     Dosage: 10MG, 1 IN 1 D, ORAL
     Route: 048
     Dates: start: 20061115, end: 20061201
  2. BENICAR [Suspect]
  3. TAMSULOSIN HCL [Suspect]

REACTIONS (1)
  - DEATH [None]
